FAERS Safety Report 9747255 (Version 2)
Quarter: 2013Q4

REPORT INFORMATION
  Report Type: Spontaneous
  Country: DE (occurrence: DE)
  Receive Date: 20131212
  Receipt Date: 20131223
  Transmission Date: 20140711
  Serious: Yes (Hospitalization)
  Sender: FDA-Public Use
  Company Number: GXKR2013DE003755

PATIENT
  Age: 83 Year
  Sex: Male

DRUGS (7)
  1. ROPINIROL 1 A PHARMA [Suspect]
     Indication: RESTLESS LEGS SYNDROME
     Dosage: 2 MG, BID
     Route: 048
  2. TORASEMID [Concomitant]
  3. RAMIPRIL [Concomitant]
  4. MARCUMAR [Concomitant]
  5. INSULIN ACTRAPHANE [Concomitant]
  6. OMEPRAZOLE [Concomitant]
  7. LEVODOPA [Concomitant]

REACTIONS (6)
  - Testicular swelling [Recovered/Resolved]
  - Oedema peripheral [Recovered/Resolved]
  - Arrhythmia [Recovered/Resolved]
  - Insomnia [Recovered/Resolved]
  - Fall [Recovered/Resolved]
  - Syncope [Recovered/Resolved]
